FAERS Safety Report 4889588-4 (Version None)
Quarter: 2006Q1

REPORT INFORMATION
  Report Type: 
  Country: None (occurrence: None)
  Receive Date: 20060120
  Receipt Date: 20060111
  Transmission Date: 20060701
  Serious: Yes (Hospitalization)
  Sender: FDA-Public Use
  Company Number: 2005168178

PATIENT
  Age: 42 Year
  Sex: Female

DRUGS (5)
  1. NEURONTIN [Suspect]
     Indication: NEURALGIA
     Dosage: 900 MG (300 MG,  3 IN 1 D), ORAL
     Route: 048
     Dates: start: 20050913, end: 20051207
  2. NPH INSULIN [Concomitant]
  3. ATENOLOL [Concomitant]
  4. LOFTON (BUFLOMEDIL HYDROCHLORIDE) [Concomitant]
  5. ORAL CONTRACEPTIVE NOS (ORAL CONTRACEPTIVE NOS) [Concomitant]

REACTIONS (4)
  - ANAEMIA [None]
  - CONDITION AGGRAVATED [None]
  - DIABETES MELLITUS [None]
  - RENAL FAILURE CHRONIC [None]
